FAERS Safety Report 6092981-8 (Version None)
Quarter: 2009Q1

REPORT INFORMATION
  Report Type: 
  Country: None (occurrence: None)
  Receive Date: 20090224
  Receipt Date: 20090205
  Transmission Date: 20090719
  Serious: Yes (Death, Hospitalization)
  Sender: FDA-Public Use
  Company Number: 2009-025

PATIENT
  Age: 74 Year
  Sex: Female

DRUGS (7)
  1. FAZACLO ODT [Suspect]
     Indication: SCHIZOPHRENIA
     Dosage: 125 MG BID PO
     Route: 048
     Dates: start: 20070501, end: 20081113
  2. FRAGMIN [Concomitant]
  3. MICRONASE [Concomitant]
  4. LANTUS [Concomitant]
  5. LOPRESSOR [Concomitant]
  6. DUONEB [Concomitant]
  7. ASPIRIN [Concomitant]

REACTIONS (1)
  - PNEUMONIA [None]
